FAERS Safety Report 19561705 (Version 1)
Quarter: 2021Q3

REPORT INFORMATION
  Report Type: Spontaneous
  Country: US (occurrence: US)
  Receive Date: 20210630
  Receipt Date: 20210630
  Transmission Date: 20211014
  Serious: Yes (Disabling, Other)
  Sender: FDA-Public Use
  Company Number: None

PATIENT
  Age: 48 Year
  Sex: Female
  Weight: 68.4 kg

DRUGS (3)
  1. FENBEN (FENBENDAZOLE) [Suspect]
     Active Substance: FENBENDAZOLE
     Indication: RENAL CANCER STAGE II
     Dosage: ?          QUANTITY:1 TABLET(S);?
     Route: 048
     Dates: start: 20210204, end: 20210606
  2. CBD OIL [Concomitant]
     Active Substance: CANNABIDIOL\HERBALS
  3. VITAMIN E [Concomitant]
     Active Substance: .ALPHA.-TOCOPHEROL

REACTIONS (5)
  - Diarrhoea [None]
  - Abdominal pain upper [None]
  - Jaundice [None]
  - Eye disorder [None]
  - Suspected product quality issue [None]

NARRATIVE: CASE EVENT DATE: 20210612
